FAERS Safety Report 7632103-2 (Version None)
Quarter: 2011Q3

REPORT INFORMATION
  Report Type: 
  Country: None (occurrence: None)
  Receive Date: 20110725
  Receipt Date: 20110725
  Transmission Date: 20111222
  Serious: Yes (Death, Life-Threatening, Hospitalization, Disabling, Congenital Anomaly, Other)
  Sender: FDA-Public Use
  Company Number: None

PATIENT
  Age: 62 Year
  Sex: Male
  Weight: 115.66 kg

DRUGS (6)
  1. SIMVASTATIN [Concomitant]
  2. FINASTERIDE [Concomitant]
  3. DILTIAZEM [Concomitant]
  4. OMEPRAZOLE [Concomitant]
  5. FOLIC ACID [Concomitant]
  6. CIPROFLOXACIN [Suspect]
     Indication: HAEMATOSPERMIA
     Dosage: 500 MG
     Route: 048
     Dates: start: 20100619, end: 20100726

REACTIONS (25)
  - DYSPEPSIA [None]
  - DIARRHOEA [None]
  - PYREXIA [None]
  - HEART RATE INCREASED [None]
  - ASTHENIA [None]
  - DECREASED APPETITE [None]
  - RESTLESSNESS [None]
  - FATIGUE [None]
  - DYSSTASIA [None]
  - DIZZINESS [None]
  - INITIAL INSOMNIA [None]
  - NIGHTMARE [None]
  - PALPITATIONS [None]
  - ARTHRALGIA [None]
  - ABNORMAL DREAMS [None]
  - INFLUENZA LIKE ILLNESS [None]
  - SUICIDAL IDEATION [None]
  - NAUSEA [None]
  - ANXIETY [None]
  - HEADACHE [None]
  - MYALGIA [None]
  - CONFUSIONAL STATE [None]
  - NERVOUSNESS [None]
  - DEPRESSION [None]
  - MIDDLE INSOMNIA [None]
